FAERS Safety Report 25009029 (Version 1)
Quarter: 2025Q1

REPORT INFORMATION
  Report Type: Spontaneous
  Country: FI (occurrence: FI)
  Receive Date: 20250225
  Receipt Date: 20250225
  Transmission Date: 20250409
  Serious: Yes (Hospitalization, Disabling, Other)
  Sender: BAYER HEALTHCARE PHARMACEUTICALS INC.
  Company Number: None

PATIENT
  Age: 30 Year
  Sex: Female

DRUGS (1)
  1. KYLEENA [Suspect]
     Active Substance: LEVONORGESTREL
     Indication: Contraception
     Dosage: 17.5?G/DAY
     Route: 015
     Dates: start: 20240821, end: 20250205

REACTIONS (6)
  - Ectopic pregnancy with contraceptive device [Recovering/Resolving]
  - Ectopic pregnancy [Recovering/Resolving]
  - Salpingo-oophorectomy unilateral [Recovering/Resolving]
  - Ovarian rupture [Recovering/Resolving]
  - Ovarian haemorrhage [Recovering/Resolving]
  - Oophorectomy [Recovering/Resolving]

NARRATIVE: CASE EVENT DATE: 20250205
